FAERS Safety Report 7073375-5 (Version None)
Quarter: 2010Q4

REPORT INFORMATION
  Report Type: 
  Country: None (occurrence: None)
  Receive Date: 20101029
  Receipt Date: 20101018
  Transmission Date: 20110411
  Serious: Yes (Death, Other)
  Sender: FDA-Public Use
  Company Number: GB-ELI_LILLY_AND_COMPANY-GB201010003774

PATIENT
  Age: 29 Year
  Sex: Male

DRUGS (3)
  1. CYMBALTA [Suspect]
     Indication: DEPRESSIVE SYMPTOM
     Dosage: 60 MG, UNK
     Route: 048
     Dates: start: 20080723, end: 20081020
  2. CLOZAPINE [Concomitant]
     Indication: SCHIZOPHRENIA
     Dosage: 800 MG, DAILY (1/D)
     Route: 048
     Dates: start: 20070619, end: 20081020
  3. NALTREXONE HYDROCHLORIDE [Concomitant]

REACTIONS (2)
  - CARDIAC ARREST [None]
  - DRUG INTERACTION [None]
